FAERS Safety Report 4621005-1 (Version None)
Quarter: 2005Q1

REPORT INFORMATION
  Report Type: 
  Country: None (occurrence: None)
  Receive Date: 20050325
  Receipt Date: 20050325
  Transmission Date: 20050727
  Serious: Yes (Hospitalization)
  Sender: FDA-Public Use
  Company Number: MK200502-0108-2

PATIENT
  Age: 17 Year
  Sex: Male

DRUGS (6)
  1. ANFRANIL CAPSULES [Suspect]
     Dates: start: 20040601, end: 20040903
  2. VITAMIN A [Suspect]
     Dates: start: 20040601, end: 20040903
  3. LIMAS [Concomitant]
  4. LEXOTAN [Concomitant]
  5. SILECE [Concomitant]
  6. DEPAS [Concomitant]

REACTIONS (8)
  - BLOOD GROWTH HORMONE INCREASED [None]
  - BLOOD PROLACTIN INCREASED [None]
  - BLOOD TESTOSTERONE INCREASED [None]
  - CEREBRAL DISORDER [None]
  - ENDOCRINE TEST ABNORMAL [None]
  - LIBIDO DECREASED [None]
  - SECONDARY SEXUAL CHARACTERISTICS ABSENCE [None]
  - TESTICULAR DISORDER [None]
